FAERS Safety Report 9700069 (Version 1)
Quarter: 2013Q4

REPORT INFORMATION
  Report Type: Spontaneous
  Country: US (occurrence: US)
  Receive Date: 20131121
  Receipt Date: 20131121
  Transmission Date: 20140711
  Serious: No
  Sender: FDA-Public Use
  Company Number: US-009507513-1311USA004268

PATIENT
  Age: 38 Year
  Sex: Female
  Weight: 68.27 kg

DRUGS (2)
  1. NUVARING [Suspect]
     Indication: CONTRACEPTION
     Dosage: 1 RING FOR 4 WEEKS NO BREAK IN BETWEEN
     Route: 067
     Dates: start: 201011
  2. NUVARING [Suspect]
     Indication: DYSMENORRHOEA

REACTIONS (2)
  - Overdose [Unknown]
  - Inappropriate schedule of drug administration [Unknown]
